FAERS Safety Report 8362041-1 (Version None)
Quarter: 2012Q2

REPORT INFORMATION
  Report Type: 
  Country: None (occurrence: None)
  Receive Date: 20120515
  Receipt Date: 20120511
  Transmission Date: 20120825
  Serious: Yes (Life-Threatening, Hospitalization)
  Sender: FDA-Public Use
  Company Number: JP-ROXANE LABORATORIES, INC.-2012-RO-01226RO

PATIENT
  Age: 41 Year
  Sex: Female

DRUGS (4)
  1. RISPERIDONE [Suspect]
     Indication: SCHIZOPHRENIA
     Dosage: 3 MG
  2. QUETIAPINE FUMARATE [Suspect]
     Indication: SCHIZOPHRENIA
     Dosage: 100 MG
  3. RISPERIDONE [Suspect]
     Dosage: 8 MG
  4. QUETIAPINE FUMARATE [Suspect]

REACTIONS (2)
  - SCHIZOPHRENIA [None]
  - NEUROLEPTIC MALIGNANT SYNDROME [None]
